FAERS Safety Report 8030017-X (Version None)
Quarter: 2012Q1

REPORT INFORMATION
  Report Type: 
  Country: None (occurrence: None)
  Receive Date: 20120106
  Receipt Date: 20120106
  Transmission Date: 20120608
  Serious: Yes (Hospitalization)
  Sender: FDA-Public Use
  Company Number: None

PATIENT
  Sex: Male
  Weight: 73.2559 kg

DRUGS (8)
  1. OXALIPLATIN [Suspect]
     Indication: ADENOCARCINOMA PANCREAS
     Dosage: 85 MG/M2
     Dates: start: 20120102
  2. FLUOROURACIL [Suspect]
     Indication: ADENOCARCINOMA PANCREAS
     Dosage: 1500 MG/M2
     Dates: start: 20120102
  3. MS CONTIN [Concomitant]
  4. OXYCODONE HCL [Concomitant]
  5. ZOFRAN [Concomitant]
  6. IRINOTECAN HCL [Suspect]
     Indication: ADENOCARCINOMA PANCREAS
     Dosage: 180 MG/M2
     Dates: start: 20120102, end: 20120102
  7. LEUCOVORIN IV, 2X/MONTH [Suspect]
     Indication: ADENOCARCINOMA PANCREAS
     Dosage: 400 MG/M2
     Dates: start: 20120102
  8. COMPAZINE [Concomitant]

REACTIONS (5)
  - NAUSEA [None]
  - VOMITING [None]
  - HUNGER [None]
  - MYALGIA [None]
  - THIRST [None]
